FAERS Safety Report 25370156 (Version 1)
Quarter: 2025Q2

REPORT INFORMATION
  Report Type: Report from Study
  Country: US (occurrence: US)
  Receive Date: 20250528
  Receipt Date: 20250528
  Transmission Date: 20250717
  Serious: No
  Sender: MALLINCKRODT
  Company Number: US-MALLINCKRODT-MNK202503005

PATIENT
  Age: 18 Year
  Sex: Female
  Weight: 270 kg

DRUGS (6)
  1. CORTICOTROPIN [Suspect]
     Active Substance: CORTICOTROPIN
     Indication: Systemic lupus erythematosus
     Route: 058
     Dates: start: 20250507
  2. LUPKYNIS [Concomitant]
     Active Substance: VOCLOSPORIN
  3. PREDNISONE [Concomitant]
     Active Substance: PREDNISONE
  4. PLAQUENIL [Concomitant]
     Active Substance: HYDROXYCHLOROQUINE SULFATE
  5. ELIQUIS [Concomitant]
     Active Substance: APIXABAN
  6. BENLYSTA [Concomitant]
     Active Substance: BELIMUMAB

REACTIONS (5)
  - Oedema [Not Recovered/Not Resolved]
  - Vomiting [Unknown]
  - Malaise [Recovered/Resolved]
  - Injection site pain [Unknown]
  - Abnormal behaviour [Unknown]

NARRATIVE: CASE EVENT DATE: 20250501
